FAERS Safety Report 19222365 (Version 1)
Quarter: 2021Q2

REPORT INFORMATION
  Report Type: Spontaneous
  Country: US (occurrence: US)
  Receive Date: 20210506
  Receipt Date: 20210506
  Transmission Date: 20210717
  Serious: No
  Sender: FDA-Public Use
  Company Number: None

PATIENT
  Age: 72 Year
  Sex: Male
  Weight: 105.23 kg

DRUGS (1)
  1. APIXABAN (APIXABAN 5MG TAB) [Suspect]
     Active Substance: APIXABAN
     Indication: DEEP VEIN THROMBOSIS
     Route: 048
     Dates: start: 20190920, end: 20210412

REACTIONS (6)
  - Haemoptysis [None]
  - Haemorrhage [None]
  - Melaena [None]
  - Gastric haemorrhage [None]
  - Pancreatic mass [None]
  - Retroperitoneal haematoma [None]

NARRATIVE: CASE EVENT DATE: 20210412
